FAERS Safety Report 11723127 (Version 1)
Quarter: 2015Q4

REPORT INFORMATION
  Report Type: Spontaneous
  Country: GB (occurrence: GB)
  Receive Date: 20151111
  Receipt Date: 20151111
  Transmission Date: 20160304
  Serious: Yes (Other)
  Sender: FDA-Public Use
  Company Number: GB-PFIZER INC-2015365082

PATIENT
  Age: 66 Year
  Sex: Male

DRUGS (2)
  1. SUTENT [Suspect]
     Active Substance: SUNITINIB MALATE
     Indication: METASTATIC RENAL CELL CARCINOMA
     Dosage: 50 MG, 4 WEEKS ON / 2 WEEKS OFF
     Dates: start: 20150211, end: 20150311
  2. SUTENT [Suspect]
     Active Substance: SUNITINIB MALATE
     Dosage: 37.5 MG, 2 WEEKS ON / 1 WEEK OFF
     Dates: start: 20150312, end: 20150916

REACTIONS (3)
  - Disease progression [Unknown]
  - Dermatitis exfoliative [Unknown]
  - Metastatic renal cell carcinoma [Unknown]
